FAERS Safety Report 6798200-9 (Version None)
Quarter: 2010Q2

REPORT INFORMATION
  Report Type: 
  Country: None (occurrence: None)
  Receive Date: 20100622
  Receipt Date: 20100609
  Transmission Date: 20101027
  Serious: Yes (Other)
  Sender: FDA-Public Use
  Company Number: 232380J10USA

PATIENT
  Age: 24 Year
  Sex: Male

DRUGS (6)
  1. REBIF [Suspect]
     Indication: MULTIPLE SCLEROSIS
     Dosage: 44 MCG, 3 IN 1 WK, SUBCUTANEOUS
     Route: 058
     Dates: start: 20091124, end: 20100606
  2. IBUPROFEN [Concomitant]
  3. PRISTIQ (ALL OTHER THERAPEUTIC PRODUCTS) [Concomitant]
  4. LORAZEPAM [Concomitant]
  5. GABAPENTIN [Concomitant]
  6. LORAZEPAM [Concomitant]

REACTIONS (10)
  - ANXIETY [None]
  - CONFUSIONAL STATE [None]
  - DECREASED APPETITE [None]
  - DEPRESSION [None]
  - FEELING ABNORMAL [None]
  - INJECTION SITE ERYTHEMA [None]
  - NEURALGIA [None]
  - OVERDOSE [None]
  - POLYDIPSIA [None]
  - SUICIDAL IDEATION [None]
